FAERS Safety Report 26208429 (Version 1)
Quarter: 2025Q4

REPORT INFORMATION
  Report Type: Spontaneous
  Country: US (occurrence: None)
  Receive Date: 20251226
  Receipt Date: 20251226
  Transmission Date: 20260118
  Serious: Yes (Hospitalization)
  Sender: FDA-CTU
  Company Number: None

PATIENT
  Sex: Female

DRUGS (8)
  1. VYNDAMAX [Suspect]
     Active Substance: TAFAMIDIS
     Indication: Amyloidosis
     Route: 048
     Dates: start: 20231115
  2. ASPIRIN [Concomitant]
     Active Substance: ASPIRIN
  3. DICLOFENAC TAB 100MG ER [Concomitant]
  4. DOXYCYCL HYC TAB  100MG [Concomitant]
  5. TORSEMIDE TAB 20MG [Concomitant]
  6. TYLENOL TAB 500MG [Concomitant]
  7. VIT B COMPLX TAB /VIT C [Concomitant]
  8. WARFARIN TAB SMG [Concomitant]

REACTIONS (1)
  - Haematochezia [None]
